FAERS Safety Report 5015439-3 (Version None)
Quarter: 2006Q2

REPORT INFORMATION
  Report Type: 
  Country: None (occurrence: None)
  Receive Date: 20060601
  Receipt Date: 20060520
  Transmission Date: 20061013
  Serious: Yes (Hospitalization)
  Sender: FDA-Public Use
  Company Number: PHNU2006DE02051

PATIENT
  Sex: Male

DRUGS (1)
  1. CLOZAPINE [Suspect]
     Dosage: 300 MG, ONCE/SINGLE
     Route: 048
     Dates: start: 20060519, end: 20060519

REACTIONS (5)
  - ACCIDENTAL EXPOSURE [None]
  - AGITATION [None]
  - HYPERHIDROSIS [None]
  - SALIVARY HYPERSECRETION [None]
  - SPEECH DISORDER [None]
